FAERS Safety Report 15500128 (Version 1)
Quarter: 2018Q4

REPORT INFORMATION
  Report Type: Spontaneous
  Country: US (occurrence: US)
  Receive Date: 20181015
  Receipt Date: 20181015
  Transmission Date: 20190205
  Serious: No
  Sender: FDA-Public Use
  Company Number: US-DEPOMED, INC.-US-2017DEP001805

PATIENT

DRUGS (1)
  1. NUCYNTA ER [Suspect]
     Active Substance: TAPENTADOL HYDROCHLORIDE
     Indication: DIABETES MELLITUS
     Dosage: 150 MG, BID
     Route: 048

REACTIONS (3)
  - Inappropriate schedule of product administration [Unknown]
  - Product dose omission [Recovered/Resolved]
  - Product use in unapproved indication [Not Recovered/Not Resolved]
